FAERS Safety Report 9340497 (Version 2)
Quarter: 2013Q4

REPORT INFORMATION
  Report Type: Spontaneous
  Country: RO (occurrence: RO)
  Receive Date: 20130208
  Receipt Date: 20131010
  Transmission Date: 20140711
  Serious: Yes (Hospitalization)
  Sender: FDA-Public Use
  Company Number: PHHY2013RO010063

PATIENT
  Age: 60 Year
  Sex: Female

DRUGS (3)
  1. OXCARBAZEPINE [Suspect]
     Indication: PARTIAL SEIZURES WITH SECONDARY GENERALISATION
     Dosage: 900 MG, DAILY
  2. OXCARBAZEPINE [Suspect]
     Indication: SEIZURE CLUSTER
  3. LEVETIRACETAM [Concomitant]
     Indication: PARTIAL SEIZURES WITH SECONDARY GENERALISATION
     Dosage: 1000 MG, DAILY

REACTIONS (10)
  - Cardiac hypertrophy [Unknown]
  - VIIth nerve paralysis [Unknown]
  - Status epilepticus [Recovered/Resolved]
  - Hypokalaemia [Recovered/Resolved]
  - Hemiplegia [Unknown]
  - Extensor plantar response [Recovered/Resolved]
  - Seizure cluster [Recovered/Resolved]
  - Stupor [Recovered/Resolved]
  - Partial seizures with secondary generalisation [Recovered/Resolved]
  - Hyponatraemia [Recovered/Resolved]
